FAERS Safety Report 6850954-9 (Version None)
Quarter: 2010Q3

REPORT INFORMATION
  Report Type: 
  Country: None (occurrence: None)
  Receive Date: 20100716
  Receipt Date: 20071028
  Transmission Date: 20110219
  Serious: No
  Sender: FDA-Public Use
  Company Number: US-PFIZER INC-2007090725

PATIENT
  Age: 22 Year
  Sex: Male

DRUGS (3)
  1. CHANTIX [Suspect]
     Indication: SMOKING CESSATION THERAPY
     Dates: start: 20071020
  2. CORTICOSTEROID NOS [Concomitant]
     Dates: end: 20070101
  3. MARIJUANA [Concomitant]

REACTIONS (4)
  - FATIGUE [None]
  - FRUSTRATION [None]
  - IRRITABILITY [None]
  - MEDICATION ERROR [None]
